FAERS Safety Report 8393574-X (Version None)
Quarter: 2012Q2

REPORT INFORMATION
  Report Type: 
  Country: None (occurrence: None)
  Receive Date: 20120530
  Receipt Date: 20120516
  Transmission Date: 20120825
  Serious: Yes (Other)
  Sender: FDA-Public Use
  Company Number: BR-AMGEN-BRASP2012031845

PATIENT
  Age: 43 Year
  Sex: Female
  Weight: 56 kg

DRUGS (12)
  1. ENBREL [Suspect]
     Indication: ANKYLOSING SPONDYLITIS
     Dosage: 50 MG, ONCE WEEKLY
     Route: 058
     Dates: start: 20111001
  2. OMEPRAZOLE [Concomitant]
     Dosage: 20 MG, 2X/DAY (12/12H)
  3. CALCIUM [Concomitant]
     Dosage: 600 MG, 1X/DAY
  4. METHOTREXATE [Concomitant]
     Dosage: 17.5  MG, 7 TABLETS, ONCE WEEKLY
  5. TYLEX                              /00547501/ [Concomitant]
     Indication: PAIN
     Dosage: AS NEEDED FOR STRONG PAIN
  6. TRAMADOL HYDROCHLORIDE [Concomitant]
     Indication: PAIN
     Dosage: AS NEEDED FOR STRONG PAIN
  7. SERTRALINE HYDROCHLORIDE [Concomitant]
     Dosage: 50 MG, 2X/DAY
  8. PREDNISONE [Concomitant]
     Dosage: 5 MG, 1X/DAY
  9. ACETAMINOPHEN [Concomitant]
     Indication: PAIN
     Dosage: UNK
  10. DICLOFENAC [Concomitant]
     Dosage: 50 MG, 3X/DAY (8/8H)
  11. ALENDRONATE SODIUM [Concomitant]
     Dosage: 70 MG, ONCE WEEKLY
  12. FOLIC ACID [Concomitant]
     Dosage: 5 MG, ONCE WEEKLY

REACTIONS (5)
  - PAIN [None]
  - PAIN IN EXTREMITY [None]
  - JOINT DISLOCATION [None]
  - ARTHRALGIA [None]
  - MUSCLE RIGIDITY [None]
